FAERS Safety Report 24593354 (Version 2)
Quarter: 2025Q1

REPORT INFORMATION
  Report Type: Report from Study
  Country: CA (occurrence: CA)
  Receive Date: 20241108
  Receipt Date: 20250317
  Transmission Date: 20250408
  Serious: Yes (Hospitalization, Other)
  Sender: SANDOZ
  Company Number: CA-002147023-NVSC2022CA215143

PATIENT
  Sex: Male
  Weight: 99 kg

DRUGS (2)
  1. HYRIMOZ [Suspect]
     Active Substance: ADALIMUMAB-ADAZ
     Indication: Colitis ulcerative
     Dosage: 40 MG, QW
     Route: 058
     Dates: start: 20211203
  2. HYRIMOZ [Suspect]
     Active Substance: ADALIMUMAB-ADAZ
     Dosage: 40 MG, QW ( 40MG Q WEEK)
     Route: 058
     Dates: start: 20241102

REACTIONS (6)
  - Aortic aneurysm [Unknown]
  - Haematological infection [Unknown]
  - Colitis ulcerative [Unknown]
  - Haematochezia [Unknown]
  - Flatulence [Unknown]
  - Off label use [Unknown]
